FAERS Safety Report 7436288 (Version 4)
Quarter: 2013Q3

REPORT INFORMATION
  Report Type: Spontaneous
  Country: US (occurrence: US)
  Receive Date: 20100625
  Receipt Date: 20130703
  Transmission Date: 20140515
  Serious: Yes (Hospitalization)
  Sender: FDA-Public Use
  Company Number: US-JNJFOC-20100605950

PATIENT
  Age: 60 Year
  Sex: Female
  Weight: 90.72 kg

DRUGS (4)
  1. REMICADE [Suspect]
     Indication: PSORIATIC ARTHROPATHY
     Dosage: 4TH INFUSION
     Route: 042
     Dates: start: 20100504
  2. REMICADE [Suspect]
     Indication: PSORIATIC ARTHROPATHY
     Dosage: 1-3 INFUSIONS
     Route: 042
     Dates: start: 20100318
  3. METHOTREXATE [Concomitant]
     Indication: PSORIATIC ARTHROPATHY
     Dosage: START DATE OF DRUG WAS REPORTED AS SINCE APPROXIMATELY 4 WEEKS.
     Route: 048
  4. SOLU MEDROL [Concomitant]
     Dosage: DOSE 125 (UNITS UNSPECIFIED)
     Route: 065

REACTIONS (3)
  - Pneumonia legionella [Not Recovered/Not Resolved]
  - Multi-organ failure [Not Recovered/Not Resolved]
  - Depressed level of consciousness [Recovered/Resolved]
